FAERS Safety Report 21224845 (Version 1)
Quarter: 2022Q3

REPORT INFORMATION
  Report Type: Spontaneous
  Country: US (occurrence: US)
  Receive Date: 20220817
  Receipt Date: 20220817
  Transmission Date: 20221027
  Serious: No
  Sender: FDA-Public Use
  Company Number: US-OTSUKA-2021_043151

PATIENT
  Age: 23 Year
  Sex: Male
  Weight: 57.15 kg

DRUGS (2)
  1. ABILIFY MAINTENA [Suspect]
     Active Substance: ARIPIPRAZOLE
     Indication: Bipolar disorder
     Dosage: 400 MG
     Route: 065
     Dates: start: 20211114
  2. ABILIFY [Concomitant]
     Active Substance: ARIPIPRAZOLE
     Indication: Product used for unknown indication
     Dosage: 10 MG
     Route: 065

REACTIONS (1)
  - Inability to afford medication [Unknown]

NARRATIVE: CASE EVENT DATE: 20211101
